FAERS Safety Report 10023919 (Version 1)
Quarter: 2014Q1

REPORT INFORMATION
  Report Type: Spontaneous
  Country: US (occurrence: US)
  Receive Date: 20140320
  Receipt Date: 20140320
  Transmission Date: 20141002
  Serious: No
  Sender: FDA-Public Use
  Company Number: US-MYLANLABS-2013S1014336

PATIENT
  Sex: Female

DRUGS (1)
  1. TAMOXIFEN CITRATE TABLETS, USP [Suspect]
     Indication: BREAST CANCER
     Route: 048
     Dates: start: 2011

REACTIONS (3)
  - Adenomyosis [Not Recovered/Not Resolved]
  - Endometrial hypertrophy [Not Recovered/Not Resolved]
  - Pelvic pain [Not Recovered/Not Resolved]
